FAERS Safety Report 5186249-1 (Version None)
Quarter: 2006Q4

REPORT INFORMATION
  Report Type: 
  Country: None (occurrence: None)
  Receive Date: 20061207
  Receipt Date: 20061127
  Transmission Date: 20070319
  Serious: Yes (Life-Threatening, Hospitalization)
  Sender: FDA-Public Use
  Company Number: 2006BH014211

PATIENT
  Age: 52 Year
  Sex: Male
  Weight: 58 kg

DRUGS (2)
  1. FEIBA VH IMMUNO [Suspect]
     Indication: GASTROINTESTINAL HAEMORRHAGE
     Dosage: 3000 IU; 2X A DAY; IV
     Route: 042
     Dates: start: 20061013, end: 20061017
  2. NOVOSEVEN [Concomitant]

REACTIONS (7)
  - BACK PAIN [None]
  - HAEMOLYTIC URAEMIC SYNDROME [None]
  - OLIGURIA [None]
  - POST PROCEDURAL COMPLICATION [None]
  - RENAL DISORDER [None]
  - THROMBOSIS [None]
  - THROMBOTIC MICROANGIOPATHY [None]
